FAERS Safety Report 4960432-X (Version None)
Quarter: 2006Q2

REPORT INFORMATION
  Report Type: 
  Country: None (occurrence: None)
  Receive Date: 20060403
  Receipt Date: 20060327
  Transmission Date: 20061013
  Serious: Yes (Hospitalization)
  Sender: FDA-Public Use
  Company Number: FR-RB-2996-2006

PATIENT
  Age: 31 Year
  Sex: Female

DRUGS (5)
  1. BUPRENORPHINE HCL [Suspect]
     Route: 042
     Dates: start: 19960101, end: 20060201
  2. FLUNITRAZEPAM [Concomitant]
     Indication: SLEEP DISORDER
     Route: 048
     Dates: start: 20020501, end: 20060201
  3. ALIMEMAZINE TARTRATE [Concomitant]
     Route: 048
     Dates: start: 20050404, end: 20060201
  4. DIAZEPAM [Concomitant]
     Route: 048
     Dates: start: 20050101, end: 20050404
  5. CITALOPRAM HYDROBROMIDE [Concomitant]
     Indication: DRUG USE FOR UNKNOWN INDICATION
     Route: 048
     Dates: start: 20050404, end: 20060201

REACTIONS (4)
  - INTENTIONAL DRUG MISUSE [None]
  - OEDEMA PERIPHERAL [None]
  - SKIN GRAFT [None]
  - SKIN ULCER [None]
